FAERS Safety Report 20876179 (Version 1)
Quarter: 2022Q2

REPORT INFORMATION
  Report Type: Report from Study
  Country: BR (occurrence: BR)
  Receive Date: 20220526
  Receipt Date: 20220526
  Transmission Date: 20220721
  Serious: Yes (Death, Other)
  Sender: FDA-Public Use
  Company Number: BR-ABBVIE-22K-020-4409321-00

PATIENT
  Age: 78 Year
  Sex: Female
  Weight: 70 kg

DRUGS (1)
  1. HUMIRA [Suspect]
     Active Substance: ADALIMUMAB
     Indication: Rheumatoid arthritis
     Route: 058
     Dates: start: 20180418

REACTIONS (4)
  - COVID-19 [Fatal]
  - Renal disorder [Unknown]
  - General symptom [Unknown]
  - Pneumonia [Unknown]

NARRATIVE: CASE EVENT DATE: 20220222
